FAERS Safety Report 22126909 (Version 9)
Quarter: 2024Q3

REPORT INFORMATION
  Report Type: Report from Study
  Country: FR (occurrence: FR)
  Receive Date: 20230322
  Receipt Date: 20240802
  Transmission Date: 20241016
  Serious: Yes (Other)
  Sender: JOHNSON AND JOHNSON
  Company Number: FR-JNJFOC-20230334564

PATIENT
  Age: 20 Year
  Sex: Female

DRUGS (2)
  1. SPRAVATO [Suspect]
     Active Substance: ESKETAMINE
     Indication: Depression
     Dosage: OTHER THERAPY DATES (TOTAL DOSES:3): 10/MAR/2023
     Dates: start: 20230228, end: 20230317
  2. SPRAVATO [Suspect]
     Active Substance: ESKETAMINE
     Dates: start: 20230317, end: 20230616

REACTIONS (8)
  - Suicidal ideation [Recovering/Resolving]
  - Anxiety [Recovered/Resolved]
  - Pain [Recovered/Resolved]
  - Paraesthesia [Recovered/Resolved]
  - Dissociative disorder [Recovered/Resolved]
  - Dissociation [Recovering/Resolving]
  - Drug ineffective [Unknown]
  - Sedation [Recovering/Resolving]

NARRATIVE: CASE EVENT DATE: 20230101
